FAERS Safety Report 15762829 (Version 1)
Quarter: 2018Q4

REPORT INFORMATION
  Report Type: Spontaneous
  Country: IT (occurrence: IT)
  Receive Date: 20181226
  Receipt Date: 20181226
  Transmission Date: 20190205
  Serious: Yes (Hospitalization)
  Sender: FDA-Public Use
  Company Number: IT-PFIZER INC-453385

PATIENT
  Age: 41 Year
  Sex: Female

DRUGS (7)
  1. DEXAMETHASONE. [Concomitant]
     Active Substance: DEXAMETHASONE
     Indication: BRAIN OEDEMA
     Dosage: 8 MG, UNK
     Route: 042
     Dates: start: 20091010, end: 20091127
  2. METRONIDAZOLE. [Concomitant]
     Active Substance: METRONIDAZOLE
     Indication: ENCEPHALITIS
     Dosage: 2 G, UNK
     Route: 042
     Dates: start: 20091028, end: 20091120
  3. FLUCONAZOLE. [Concomitant]
     Active Substance: FLUCONAZOLE
     Indication: FUNGAL INFECTION
     Dosage: 400 MG, UNK
     Route: 042
     Dates: start: 20091117, end: 20091120
  4. VANCOMYCIN HCL [Suspect]
     Active Substance: VANCOMYCIN HYDROCHLORIDE
     Indication: PRODUCT USED FOR UNKNOWN INDICATION
     Dosage: 2 G, DAILY
     Route: 042
     Dates: start: 20091114, end: 20091120
  5. PHENYTOIN SODIUM. [Concomitant]
     Active Substance: PHENYTOIN SODIUM
     Indication: EPILEPSY
     Dosage: 500 MG, UNK
     Route: 042
     Dates: start: 20091101, end: 20091120
  6. ENOXAPARIN [Concomitant]
     Active Substance: ENOXAPARIN
     Indication: THROMBOSIS PROPHYLAXIS
     Dosage: 6000 IU, UNK
     Route: 058
     Dates: start: 20091010, end: 20091127
  7. MEROPENEM. [Concomitant]
     Active Substance: MEROPENEM
     Indication: ENCEPHALITIS
     Dosage: 6 G, UNK
     Route: 042
     Dates: start: 20091028, end: 20091120

REACTIONS (1)
  - Rash maculo-papular [Not Recovered/Not Resolved]

NARRATIVE: CASE EVENT DATE: 20091120
